FAERS Safety Report 9452996 (Version 3)
Quarter: 2013Q3

REPORT INFORMATION
  Report Type: Report from Study
  Country: FI (occurrence: FI)
  Receive Date: 20130812
  Receipt Date: 20130912
  Transmission Date: 20140515
  Serious: Yes (Hospitalization)
  Sender: FDA-Public Use
  Company Number: FI-NOVOPROD-384528

PATIENT
  Age: 66 Year
  Sex: Female
  Weight: 97.3 kg

DRUGS (2)
  1. LIRAGLUTIDE FLEXPEN [Suspect]
     Indication: OBESITY
     Dosage: 0.6 MG, UNK
     Route: 058
     Dates: start: 20111028
  2. LIRAGLUTIDE FLEXPEN [Suspect]
     Dosage: 3 MG, QD
     Route: 058
     Dates: start: 20111202, end: 20130729

REACTIONS (1)
  - Atrial fibrillation [Not Recovered/Not Resolved]
